FAERS Safety Report 6343154-2 (Version None)
Quarter: 2009Q3

REPORT INFORMATION
  Report Type: 
  Country: None (occurrence: None)
  Receive Date: 20090908
  Receipt Date: 20090827
  Transmission Date: 20100115
  Serious: Yes (Other)
  Sender: FDA-Public Use
  Company Number: US-BAYER-200824697NA

PATIENT
  Age: 37 Year
  Sex: Female
  Weight: 61 kg

DRUGS (12)
  1. CAMPATH [Suspect]
     Indication: MULTIPLE SCLEROSIS
     Dosage: TOTAL DAILY DOSE: 12 MG
     Route: 042
     Dates: start: 20080519, end: 20080523
  2. TOPAMAX [Concomitant]
     Route: 048
     Dates: start: 20051001
  3. NORTREL 7/7/7 [Concomitant]
     Dates: start: 20010501
  4. AMANTADINE HCL [Concomitant]
     Dates: start: 20051001
  5. LEXAPRO [Concomitant]
     Route: 048
     Dates: start: 20080201
  6. BENAZEPRIL HYDROCHLORIDE [Concomitant]
     Dosage: AS USED: 10/12.5 MG
     Dates: start: 20070901
  7. ZYRTEC [Concomitant]
     Route: 048
     Dates: start: 20031101
  8. LUNESTA [Concomitant]
     Route: 048
     Dates: start: 20080201
  9. ZOFRAN [Concomitant]
     Route: 048
     Dates: start: 20080519
  10. TYLENOL (CAPLET) [Concomitant]
     Route: 048
     Dates: start: 20080519
  11. BENADRYL [Concomitant]
     Route: 048
     Dates: start: 20080519
  12. METHYLPREDNISOLONE [Concomitant]
     Dates: start: 20080519, end: 20080521

REACTIONS (2)
  - DYSPNOEA [None]
  - THROMBOPHLEBITIS SUPERFICIAL [None]
